FAERS Safety Report 4754522-4 (Version None)
Quarter: 2005Q3

REPORT INFORMATION
  Report Type: 
  Country: None (occurrence: None)
  Receive Date: 20050829
  Receipt Date: 20050620
  Transmission Date: 20060218
  Serious: Yes (Death)
  Sender: FDA-Public Use
  Company Number: 2005AP03463

PATIENT
  Age: 23517 Day
  Sex: Male

DRUGS (8)
  1. IRESSA [Suspect]
     Indication: LUNG ADENOCARCINOMA
     Route: 048
     Dates: start: 20050616, end: 20050618
  2. GASCON [Concomitant]
     Indication: ABDOMINAL DISTENSION
     Route: 048
     Dates: start: 20050617, end: 20050618
  3. HYPEN [Concomitant]
     Dates: start: 20050618
  4. LENDORMIN [Concomitant]
     Indication: INSOMNIA
     Route: 048
     Dates: end: 20050618
  5. NAPROXEN [Concomitant]
     Indication: GASTROINTESTINAL DISORDER
     Route: 048
     Dates: end: 20050618
  6. GASMET [Concomitant]
     Indication: ABDOMINAL DISTENSION
     Route: 048
     Dates: end: 20050618
  7. CISPLATIN [Concomitant]
     Dosage: ONE COURSE
     Dates: start: 20050413, end: 20050413
  8. IRINOTECAN [Concomitant]
     Dosage: ONE COURSE
     Dates: start: 20050413, end: 20050413

REACTIONS (9)
  - BLOOD LACTATE DEHYDROGENASE INCREASED [None]
  - BLOOD POTASSIUM INCREASED [None]
  - BLOOD PRESSURE DIASTOLIC DECREASED [None]
  - DEPRESSED LEVEL OF CONSCIOUSNESS [None]
  - DISEASE PROGRESSION [None]
  - FALL [None]
  - HEART RATE INCREASED [None]
  - MESENTERIC OCCLUSION [None]
  - OXYGEN SATURATION DECREASED [None]
